FAERS Safety Report 5252848-1 (Version None)
Quarter: 2007Q1

REPORT INFORMATION
  Report Type: 
  Country: None (occurrence: None)
  Receive Date: 20070227
  Receipt Date: 20070220
  Transmission Date: 20070707
  Serious: Yes (Life-Threatening)
  Sender: FDA-Public Use
  Company Number: 236003

PATIENT
  Age: 84 Year
  Sex: Female

DRUGS (1)
  1. ACTIVACIN (ALTEPLASE) PWDR+ SOLVENT, INFUSION SOLN [Suspect]
     Indication: CEREBRAL ARTERY EMBOLISM
     Dosage: 18 MG, SINGLE, INTRAVENOUS
     Route: 042
     Dates: start: 20070121, end: 20070121

REACTIONS (5)
  - BLOOD GLUCOSE INCREASED [None]
  - BRAIN STEM INFARCTION [None]
  - CARDIOGENIC SHOCK [None]
  - RESUSCITATION [None]
  - UNEVALUABLE EVENT [None]
